FAERS Safety Report 7625809-2 (Version None)
Quarter: 2011Q3

REPORT INFORMATION
  Report Type: 
  Country: None (occurrence: None)
  Receive Date: 20110721
  Receipt Date: 20110711
  Transmission Date: 20111222
  Serious: Yes (Other)
  Sender: FDA-Public Use
  Company Number: US-ELI_LILLY_AND_COMPANY-US201102005087

PATIENT
  Age: 53 Year
  Sex: Male

DRUGS (1)
  1. CIALIS [Suspect]

REACTIONS (2)
  - ROAD TRAFFIC ACCIDENT [None]
  - BLINDNESS [None]
